FAERS Safety Report 5284102-6 (Version None)
Quarter: 2007Q2

REPORT INFORMATION
  Report Type: 
  Country: None (occurrence: None)
  Receive Date: 20070403
  Receipt Date: 20070326
  Transmission Date: 20071010
  Serious: Yes (Hospitalization)
  Sender: FDA-Public Use
  Company Number: JP-SP-2006-03471

PATIENT
  Age: 73 Year
  Sex: Male

DRUGS (10)
  1. IMMUCYST [Suspect]
     Indication: BLADDER CANCER
     Route: 043
     Dates: start: 20061107, end: 20070208
  2. IMMUCYST [Suspect]
     Route: 043
     Dates: start: 20061107, end: 20070208
  3. IMMUCYST [Suspect]
     Route: 043
     Dates: start: 20061107, end: 20070208
  4. IMMUCYST [Suspect]
     Route: 043
     Dates: start: 20061107, end: 20070208
  5. BICALUTAMIDE [Concomitant]
     Route: 048
     Dates: start: 20050408, end: 20070222
  6. URAPIDIL [Concomitant]
     Route: 048
     Dates: start: 20041201
  7. FAMOTIDINE [Concomitant]
     Route: 048
     Dates: start: 20061222, end: 20070320
  8. UFT [Concomitant]
     Dates: start: 20031215
  9. ACLATONIUM NAPADISILATE [Concomitant]
     Route: 048
     Dates: start: 20031215
  10. DIGESTIVE ENZYME PREPARATIONS [Concomitant]
     Route: 048
     Dates: start: 20031215

REACTIONS (5)
  - HEPATIC FUNCTION ABNORMAL [None]
  - NECK PAIN [None]
  - POLYARTHRITIS [None]
  - PYREXIA [None]
  - URINARY BLADDER HAEMORRHAGE [None]
